FAERS Safety Report 5614997-5 (Version None)
Quarter: 2008Q1

REPORT INFORMATION
  Report Type: 
  Country: None (occurrence: None)
  Receive Date: 20080206
  Receipt Date: 20080129
  Transmission Date: 20080703
  Serious: Yes (Other)
  Sender: FDA-Public Use
  Company Number: PHBS2008CA01389

PATIENT
  Age: 52 Year
  Sex: Female

DRUGS (4)
  1. DIOVAN HCT [Suspect]
     Indication: HYPERTENSION
     Dosage: 160/12.5 MG
     Route: 048
     Dates: start: 20070927
  2. CALCIUM CHANNEL BLOCKERS [Concomitant]
     Indication: HYPERTENSION
  3. BETA BLOCKING AGENTS [Concomitant]
     Indication: HYPERTENSION
  4. SULFASALAZINE [Suspect]
     Dosage: 5 TABLETS/DAY

REACTIONS (3)
  - HYPERTENSION [None]
  - NEPHRITIS [None]
  - URINE ALBUMIN/CREATININE RATIO INCREASED [None]
